FAERS Safety Report 5861264-0 (Version None)
Quarter: 2008Q3

REPORT INFORMATION
  Report Type: 
  Country: None (occurrence: None)
  Receive Date: 20080827
  Receipt Date: 20080322
  Transmission Date: 20090109
  Serious: No
  Sender: FDA-Public Use
  Company Number: US-ABBOTT-08P-163-0444219-00

PATIENT
  Sex: Male
  Weight: 73.548 kg

DRUGS (9)
  1. NIASPAN [Suspect]
     Indication: BLOOD CHOLESTEROL INCREASED
     Route: 048
     Dates: start: 20080320
  2. WARFARIN SODIUM [Concomitant]
     Indication: CEREBROVASCULAR ACCIDENT
     Route: 048
  3. WARFARIN SODIUM [Concomitant]
     Indication: MYOCARDIAL INFARCTION
  4. METFORMIN HCL [Concomitant]
     Indication: DIABETES MELLITUS
     Route: 048
  5. BLOOD PRESSURE PILL [Concomitant]
     Indication: HYPERTENSION
     Route: 048
  6. THE PATIENT TAKES 18 PILLS A DAY CANT REMEMBER ALL OF THEM [Concomitant]
     Indication: CEREBROVASCULAR ACCIDENT
  7. THE PATIENT TAKES 18 PILLS A DAY CANT REMEMBER ALL OF THEM [Concomitant]
     Indication: DIABETES MELLITUS
  8. THE PATIENT TAKES 18 PILLS A DAY CANT REMEMBER ALL OF THEM [Concomitant]
     Indication: HYPERTENSION
  9. THE PATIENT TAKES 18 PILLS A DAY CANT REMEMBER ALL OF THEM [Concomitant]
     Indication: MYOCARDIAL INFARCTION

REACTIONS (2)
  - FEELING HOT [None]
  - THERAPEUTIC RESPONSE UNEXPECTED [None]
